FAERS Safety Report 5311586-7 (Version None)
Quarter: 2007Q2

REPORT INFORMATION
  Report Type: 
  Country: None (occurrence: None)
  Receive Date: 20070430
  Receipt Date: 20070416
  Transmission Date: 20071010
  Serious: Yes (Hospitalization)
  Sender: FDA-Public Use
  Company Number: FR-ROCHE-493314

PATIENT
  Age: 64 Year
  Sex: Female
  Weight: 47 kg

DRUGS (3)
  1. ROVALCYTE [Suspect]
     Indication: DRUG USE FOR UNKNOWN INDICATION
     Route: 065
     Dates: start: 20070117, end: 20070218
  2. SOLU-MEDROL [Concomitant]
  3. 10 CONCOMITANT DRUGS [Concomitant]

REACTIONS (1)
  - AGRANULOCYTOSIS [None]
